FAERS Safety Report 6115125-2 (Version None)
Quarter: 2009Q1

REPORT INFORMATION
  Report Type: 
  Country: None (occurrence: None)
  Receive Date: 20090313
  Receipt Date: 20090303
  Transmission Date: 20090719
  Serious: Yes (Other)
  Sender: FDA-Public Use
  Company Number: JP-PFIZER INC-2008160814

PATIENT

DRUGS (5)
  1. SUNITINIB MALATE [Suspect]
     Indication: GASTROINTESTINAL STROMAL TUMOUR
     Dosage: 50 MG, 1X/DAY
     Route: 048
     Dates: start: 20080815, end: 20080830
  2. SUNITINIB MALATE [Suspect]
     Dosage: 37.5 MG, 1X/DAY
     Route: 048
     Dates: start: 20081107, end: 20081218
  3. LASIX [Concomitant]
     Dosage: UNK
     Route: 048
  4. TAKEPRON [Concomitant]
     Dosage: UNK
     Route: 048
  5. CYANOCOBALAMIN [Concomitant]
     Dosage: UNK
     Route: 048
     Dates: start: 20080901

REACTIONS (3)
  - BLOOD CREATINE PHOSPHOKINASE INCREASED [None]
  - RHABDOMYOLYSIS [None]
  - TUMOUR LYSIS SYNDROME [None]
